FAERS Safety Report 8379596-3 (Version None)
Quarter: 2012Q1

REPORT INFORMATION
  Report Type: 
  Country: None (occurrence: None)
  Receive Date: 20120323
  Receipt Date: 20110407
  Transmission Date: 20120608
  Serious: Yes (Other)
  Sender: FDA-Public Use
  Company Number: 163-21880-11040905

PATIENT
  Age: 84 Year
  Sex: Male

DRUGS (3)
  1. REVLIMID [Suspect]
     Indication: MYELODYSPLASTIC SYNDROME
     Dosage: 10 MG, 1 IN 1 D, PO,  5-10-5MG, DAILY, PO
     Route: 048
     Dates: start: 20061222, end: 20070101
  2. REVLIMID [Suspect]
     Indication: MYELODYSPLASTIC SYNDROME
     Dosage: 10 MG, 1 IN 1 D, PO,  5-10-5MG, DAILY, PO
     Route: 048
     Dates: start: 20110301, end: 20110323
  3. REVLIMID [Suspect]
     Indication: MYELODYSPLASTIC SYNDROME
     Dosage: 10 MG, 1 IN 1 D, PO,  5-10-5MG, DAILY, PO
     Route: 048
     Dates: start: 20070901, end: 20101201

REACTIONS (1)
  - PANCYTOPENIA [None]
